FAERS Safety Report 18010817 (Version 1)
Quarter: 2020Q3

REPORT INFORMATION
  Report Type: Spontaneous
  Country: US (occurrence: US)
  Receive Date: 20200711
  Receipt Date: 20200711
  Transmission Date: 20201103
  Serious: Yes (Life-Threatening, Hospitalization, Other)
  Sender: FDA-Public Use
  Company Number: US-MACLEODS PHARMACEUTICALS US LTD-MAC2020027104

PATIENT

DRUGS (2)
  1. OLANZAPINE. [Suspect]
     Active Substance: OLANZAPINE
     Dosage: 20 MILLIGRAM, QD, INCREASED TO
     Route: 065
  2. OLANZAPINE. [Suspect]
     Active Substance: OLANZAPINE
     Indication: PSYCHOTIC SYMPTOM
     Dosage: 10 MILLIGRAM, QD
     Route: 065

REACTIONS (8)
  - Generalised tonic-clonic seizure [Unknown]
  - Mental status changes [Recovered/Resolved]
  - Restlessness [Unknown]
  - Hyponatraemia [Recovered/Resolved]
  - Loss of consciousness [Unknown]
  - Agitation [Unknown]
  - Muscle rigidity [Unknown]
  - Tachycardia [Unknown]
